FAERS Safety Report 5378171-2 (Version None)
Quarter: 2007Q3

REPORT INFORMATION
  Report Type: 
  Country: None (occurrence: None)
  Receive Date: 20070705
  Receipt Date: 20070622
  Transmission Date: 20080115
  Serious: Yes (Other)
  Sender: FDA-Public Use
  Company Number: GB-JNJFOC-20070605598

PATIENT
  Sex: Male

DRUGS (2)
  1. REMICADE [Suspect]
     Route: 042
  2. REMICADE [Suspect]
     Indication: PRURITUS
     Route: 042

REACTIONS (3)
  - ANAPHYLACTIC REACTION [None]
  - HYPERVENTILATION [None]
  - INFUSION RELATED REACTION [None]
